FAERS Safety Report 9994939 (Version 1)
Quarter: 2014Q1

REPORT INFORMATION
  Report Type: Spontaneous
  Country: US (occurrence: None)
  Receive Date: 20140307
  Receipt Date: 20140307
  Transmission Date: 20141002
  Serious: Yes (Other)
  Sender: FDA-Public Use
  Company Number: None

PATIENT
  Age: 69 Year
  Sex: Female
  Weight: 117.94 kg

DRUGS (5)
  1. BAYER ASPIRIN [Concomitant]
  2. METOPROLOL SUCC [Suspect]
     Indication: CARDIAC DISORDER
     Dosage: BY MOUTH
     Dates: start: 201307, end: 20140227
  3. DICYCLOMINE [Concomitant]
  4. OMEPRAZOLE [Concomitant]
  5. LISINOPRIL [Concomitant]

REACTIONS (1)
  - Alopecia [None]
